FAERS Safety Report 10530401 (Version 2)
Quarter: 2015Q1

REPORT INFORMATION
  Report Type: Spontaneous
  Country: AU (occurrence: None)
  Receive Date: 20141017
  Receipt Date: 20150120
  Transmission Date: 20150720
  Serious: Yes (Other)
  Sender: FDA-Public Use
  Company Number: 2014-20491

PATIENT
  Age: 74 Year
  Sex: Female

DRUGS (1)
  1. EYLEA [Suspect]
     Active Substance: AFLIBERCEPT
     Indication: AGE-RELATED MACULAR DEGENERATION
     Dosage: 2 MG, Q4WK, INTRAOCULAR
     Route: 031
     Dates: start: 201212

REACTIONS (7)
  - Ear neoplasm [None]
  - Inappropriate schedule of drug administration [None]
  - Off label use [None]
  - Ear disorder [None]
  - Photosensitivity reaction [None]
  - Eye haemorrhage [None]
  - Neoplasm [None]

NARRATIVE: CASE EVENT DATE: 20140911
